FAERS Safety Report 5235829-3 (Version None)
Quarter: 2007Q1

REPORT INFORMATION
  Report Type: 
  Country: None (occurrence: None)
  Receive Date: 20070212
  Receipt Date: 20070207
  Transmission Date: 20070707
  Serious: Yes (Other)
  Sender: FDA-Public Use
  Company Number: US-AVENTIS-200619644US

PATIENT
  Sex: Male
  Weight: 68.04 kg

DRUGS (16)
  1. LANTUS [Suspect]
     Dates: start: 20060101
  2. LANTUS [Suspect]
     Dates: start: 20060101
  3. LANTUS [Suspect]
  4. IMMUNOSUPPRESSIVE AGENTS [Concomitant]
     Dosage: DOSE: UNK
  5. PREDNISONE [Concomitant]
     Dosage: DOSE: UNK
  6. BACTRIM [Concomitant]
     Dosage: DOSE: UNK
  7. CELLCEPT [Concomitant]
     Dosage: DOSE: UNK
  8. NEORAL [Concomitant]
     Dosage: DOSE: UNK
  9. RANITIDINE [Concomitant]
     Dosage: DOSE: UNK
  10. LISINOPRIL [Concomitant]
     Dosage: DOSE: UNK
  11. COREG [Concomitant]
     Dosage: DOSE: UNK
  12. LIPITOR [Concomitant]
     Dosage: DOSE: UNK
  13. HUMALOG                            /00030501/ [Concomitant]
     Dosage: DOSE: UNK
  14. DAILY-VITE [Concomitant]
     Dosage: DOSE: UNK
  15. UNKNOWN DRUG [Concomitant]
     Dosage: DOSE: UNK
  16. NPH INSULIN [Concomitant]
     Dosage: DOSE: UNK
     Dates: end: 20060301

REACTIONS (8)
  - BLINDNESS [None]
  - BLOOD GLUCOSE INCREASED [None]
  - BLOOD PRESSURE DECREASED [None]
  - CONDITION AGGRAVATED [None]
  - DRUG INEFFECTIVE [None]
  - HALO VISION [None]
  - VISUAL ACUITY REDUCED [None]
  - VISUAL FIELD DEFECT [None]
